FAERS Safety Report 8290949-4 (Version None)
Quarter: 2012Q2

REPORT INFORMATION
  Report Type: 
  Country: None (occurrence: None)
  Receive Date: 20120417
  Receipt Date: 20120103
  Transmission Date: 20120825
  Serious: No
  Sender: FDA-Public Use
  Company Number: US-ASTRAZENECA-2012SE00385

PATIENT
  Age: 56 Year
  Sex: Female
  Weight: 79.4 kg

DRUGS (5)
  1. NEXIUM [Suspect]
     Indication: ULCER
     Route: 048
     Dates: start: 20050101
  2. LOT OF MEDICATION [Concomitant]
  3. NEXIUM [Suspect]
     Indication: HELICOBACTER GASTRITIS
     Route: 048
     Dates: start: 20050101
  4. PRILOSEC OTC [Suspect]
     Route: 048
  5. PRILOSEC [Suspect]
     Route: 048

REACTIONS (5)
  - DISEASE RECURRENCE [None]
  - ABDOMINAL PAIN UPPER [None]
  - DRUG INEFFECTIVE [None]
  - ADVERSE EVENT [None]
  - DRUG DOSE OMISSION [None]
